FAERS Safety Report 5142233-5 (Version None)
Quarter: 2006Q4

REPORT INFORMATION
  Report Type: 
  Country: None (occurrence: None)
  Receive Date: 20061102
  Receipt Date: 20061005
  Transmission Date: 20070319
  Serious: Yes (Other)
  Sender: FDA-Public Use
  Company Number: GB-GLAXOSMITHKLINE-B0441399A

PATIENT
  Sex: Male

DRUGS (8)
  1. NIQUITIN CQ 2MG LOZENGE [Suspect]
     Route: 002
     Dates: start: 20050728
  2. ZOPICLONE [Concomitant]
  3. VENTOLIN [Concomitant]
     Indication: ASTHMA
  4. BECLAZONE [Concomitant]
  5. PROMAZINE HYDROCHLORIDE [Concomitant]
  6. RISPERDAL [Concomitant]
  7. LOPERAMIDE [Concomitant]
  8. CONSTAN [Concomitant]

REACTIONS (3)
  - GINGIVAL BLEEDING [None]
  - INTENTIONAL DRUG MISUSE [None]
  - RECTAL HAEMORRHAGE [None]
